FAERS Safety Report 7734047-4 (Version None)
Quarter: 2011Q3

REPORT INFORMATION
  Report Type: 
  Country: None (occurrence: None)
  Receive Date: 20110907
  Receipt Date: 20110829
  Transmission Date: 20111222
  Serious: Yes (Life-Threatening, Hospitalization)
  Sender: FDA-Public Use
  Company Number: PL-BAXTER-2011BH027939

PATIENT
  Age: 53 Year
  Sex: Male
  Weight: 83 kg

DRUGS (1)
  1. IFOSFAMIDE [Suspect]
     Indication: TESTIS CANCER
     Route: 042
     Dates: start: 20110801, end: 20110803

REACTIONS (4)
  - MENTAL IMPAIRMENT [None]
  - ALTERED STATE OF CONSCIOUSNESS [None]
  - HALLUCINATION, VISUAL [None]
  - ECHOLALIA [None]
